FAERS Safety Report 4738427-0 (Version None)
Quarter: 2005Q3

REPORT INFORMATION
  Report Type: 
  Country: None (occurrence: None)
  Receive Date: 20050803
  Receipt Date: 20050725
  Transmission Date: 20060218
  Serious: Yes (Life-Threatening)
  Sender: FDA-Public Use
  Company Number: 2005106263

PATIENT
  Age: 43 Year
  Sex: Female

DRUGS (2)
  1. ATARAX [Suspect]
     Dosage: 100 MG ORAL
     Route: 048
     Dates: start: 20050602, end: 20050602
  2. POVIDONE IODINE [Suspect]
     Dosage: TOPICAL
     Route: 061
     Dates: start: 20050602, end: 20050602

REACTIONS (3)
  - ERYTHEMA MULTIFORME [None]
  - PARAESTHESIA [None]
  - VOMITING [None]
